FAERS Safety Report 15709966 (Version 1)
Quarter: 2018Q4

REPORT INFORMATION
  Report Type: Report from Study
  Country: US (occurrence: US)
  Receive Date: 20181211
  Receipt Date: 20181211
  Transmission Date: 20190205
  Serious: No
  Sender: FDA-Public Use
  Company Number: US-INCYTE CORPORATION-2018IN011261

PATIENT

DRUGS (1)
  1. JAKAFI [Suspect]
     Active Substance: RUXOLITINIB
     Indication: LEUKAEMIA
     Dosage: 10 MG, BID
     Route: 048

REACTIONS (4)
  - Yellow skin [Unknown]
  - Blood count abnormal [Unknown]
  - Headache [Unknown]
  - Off label use [Unknown]
